FAERS Safety Report 4519383-7 (Version None)
Quarter: 2004Q4

REPORT INFORMATION
  Report Type: 
  Country: None (occurrence: None)
  Receive Date: 20041206
  Receipt Date: 20041201
  Transmission Date: 20050328
  Serious: Yes (Hospitalization)
  Sender: FDA-Public Use
  Company Number: 04-12-1658

PATIENT
  Age: 27 Year
  Sex: Female

DRUGS (2)
  1. NICARDIPINE INJECTABLE SOLUTION [Suspect]
     Indication: TOCOLYSIS
     Dosage: 2MG/H INTRAVENOUS
     Route: 042
  2. BETAMETHASONE [Concomitant]

REACTIONS (12)
  - BLOOD PH INCREASED [None]
  - BLOOD PRESSURE DIASTOLIC DECREASED [None]
  - COMPLICATIONS OF MATERNAL EXPOSURE TO THERAPEUTIC DRUGS [None]
  - COUGH [None]
  - DYSPNOEA [None]
  - HEART RATE INCREASED [None]
  - HYPOXIA [None]
  - ORTHOPNOEA [None]
  - PCO2 DECREASED [None]
  - PO2 DECREASED [None]
  - PULMONARY OEDEMA [None]
  - SINUS TACHYCARDIA [None]
